FAERS Safety Report 20223030 (Version 1)
Quarter: 2021Q4

REPORT INFORMATION
  Report Type: Spontaneous
  Country: FR (occurrence: FR)
  Receive Date: 20211223
  Receipt Date: 20211223
  Transmission Date: 20220303
  Serious: Yes (Other)
  Sender: FDA-Public Use
  Company Number: FR-ALXN-A202114112

PATIENT

DRUGS (3)
  1. SOLIRIS [Suspect]
     Active Substance: ECULIZUMAB
     Indication: Atypical haemolytic uraemic syndrome
     Dosage: 1200 MG, Q2W
     Route: 064
     Dates: end: 202110
  2. SOLIRIS [Suspect]
     Active Substance: ECULIZUMAB
     Dosage: 1200 MG, UNK
     Route: 064
     Dates: start: 20161103
  3. SOLIRIS [Suspect]
     Active Substance: ECULIZUMAB
     Dosage: UNK
     Route: 064
     Dates: start: 20161108

REACTIONS (2)
  - Premature baby [Unknown]
  - Low birth weight baby [Unknown]
